FAERS Safety Report 7522775-5 (Version None)
Quarter: 2011Q2

REPORT INFORMATION
  Report Type: 
  Country: None (occurrence: None)
  Receive Date: 20110603
  Receipt Date: 20110520
  Transmission Date: 20111010
  Serious: Yes (Hospitalization)
  Sender: FDA-Public Use
  Company Number: GB-JNJFOC-20110509884

PATIENT
  Age: 38 Year
  Sex: Female
  Weight: 61 kg

DRUGS (4)
  1. MESALAMINE [Concomitant]
     Indication: COLITIS ULCERATIVE
     Route: 048
  2. REMICADE [Suspect]
     Route: 042
     Dates: start: 20110201
  3. REMICADE [Suspect]
     Indication: COLITIS ULCERATIVE
     Route: 042
     Dates: start: 20101223
  4. REMICADE [Suspect]
     Route: 042
     Dates: start: 20110320

REACTIONS (2)
  - LUPUS-LIKE SYNDROME [None]
  - VIRAL INFECTION [None]
